FAERS Safety Report 12613556 (Version 2)
Quarter: 2016Q4

REPORT INFORMATION
  Report Type: Report from Study
  Country: US (occurrence: US)
  Receive Date: 20160802
  Receipt Date: 20161014
  Transmission Date: 20170207
  Serious: Yes (Hospitalization)
  Sender: FDA-Public Use
  Company Number: US-EISAI MEDICAL RESEARCH-EC-2016-018720

PATIENT
  Sex: Female
  Weight: 122.47 kg

DRUGS (4)
  1. LENVIMA [Suspect]
     Active Substance: LENVATINIB
     Indication: THYROID CANCER
     Route: 048
     Dates: start: 20160704, end: 201607
  2. LENVIMA [Suspect]
     Active Substance: LENVATINIB
     Route: 048
     Dates: start: 20161007
  3. LENVIMA [Suspect]
     Active Substance: LENVATINIB
     Route: 048
     Dates: start: 20160825, end: 20161006
  4. LENVIMA [Suspect]
     Active Substance: LENVATINIB
     Dosage: UNKNOWN (DOSE REDUCED)
     Route: 048
     Dates: start: 20160719, end: 20160726

REACTIONS (13)
  - Gastritis [Unknown]
  - Gastrointestinal ulcer [Unknown]
  - Dehydration [Unknown]
  - Mucosal inflammation [Unknown]
  - Weight decreased [Unknown]
  - Abdominal pain [Unknown]
  - Dyspnoea [Unknown]
  - Pain in extremity [Unknown]
  - Fatigue [Not Recovered/Not Resolved]
  - Arthralgia [Unknown]
  - Aphonia [Unknown]
  - Oral pain [Not Recovered/Not Resolved]
  - Swelling face [Unknown]

NARRATIVE: CASE EVENT DATE: 2016
